FAERS Safety Report 8983256 (Version 1)
Quarter: 2012Q4

REPORT INFORMATION
  Report Type: 
  Country: US (occurrence: US)
  Receive Date: 20121224
  Receipt Date: 20121224
  Transmission Date: 20130627
  Serious: Yes (Disabling, Other)
  Sender: FDA-Public Use
  Company Number: PHEH2012US025001

PATIENT
  Sex: Female

DRUGS (9)
  1. GLEEVEC [Suspect]
     Dosage: 400 mg, daily
  2. LISINOPRIL [Concomitant]
  3. AMLODIPINE BESYLATE [Concomitant]
  4. LEVOTHYROXINE [Concomitant]
     Dosage: 150 mcg
  5. FLUOXETINE HYDROCHLORIDE [Concomitant]
  6. XANAX [Concomitant]
  7. ETOPROL [Concomitant]
  8. ISOSORBIDE MONONITRATE [Concomitant]
  9. IBUPROFEN [Concomitant]

REACTIONS (1)
  - Cardiac disorder [Unknown]
